FAERS Safety Report 5338219-8 (Version None)
Quarter: 2007Q2

REPORT INFORMATION
  Report Type: 
  Country: None (occurrence: None)
  Receive Date: 20070327
  Receipt Date: 20070123
  Transmission Date: 20071010
  Serious: Yes (Life-Threatening, Hospitalization)
  Sender: FDA-Public Use
  Company Number: 231990

PATIENT
  Age: 52 Year
  Sex: Male
  Weight: 96.6 kg

DRUGS (4)
  1. AVASTIN [Suspect]
     Indication: HEPATIC ADENOMA
     Dosage: 500 MG, Q2W, INTRAVENOUS
     Route: 042
     Dates: start: 20060618
  2. AVASTIN [Suspect]
  3. ELOXATIN [Concomitant]
  4. GEMZAR [Concomitant]

REACTIONS (2)
  - GRAND MAL CONVULSION [None]
  - REVERSIBLE POSTERIOR LEUKOENCEPHALOPATHY SYNDROME [None]
